FAERS Safety Report 12432837 (Version 2)
Quarter: 2016Q3

REPORT INFORMATION
  Report Type: Spontaneous
  Country: IT (occurrence: IT)
  Receive Date: 20160603
  Receipt Date: 20160729
  Transmission Date: 20161109
  Serious: Yes (Death, Hospitalization)
  Sender: FDA-Public Use
  Company Number: IT-TEVA-663874ACC

PATIENT
  Age: 88 Year
  Sex: Female

DRUGS (9)
  1. CARDICOR - 2.5 MG COMPRESSE [Concomitant]
     Indication: PRODUCT USED FOR UNKNOWN INDICATION
     Dosage: 1 DF
     Route: 048
  2. ALLOPURINOL. [Concomitant]
     Active Substance: ALLOPURINOL
     Indication: HYPERURICAEMIA
     Dosage: 150 MG
     Route: 048
     Dates: start: 20160325, end: 20160510
  3. CLOPIDOGREL [Suspect]
     Active Substance: CLOPIDOGREL BISULFATE
     Indication: PROPHYLAXIS
     Dosage: 75 MILLIGRAM DAILY;
     Route: 048
     Dates: start: 20160421, end: 20160510
  4. CARDICOR - 2.5 MG COMPRESSE [Concomitant]
     Dosage: 1.25 MG (AFTERNOON)
     Route: 048
  5. CARDICOR - 2.5 MG COMPRESSE [Concomitant]
     Dosage: 2.5 MG (MORNING)
     Route: 048
  6. TRITTICO - 25 MG/ML GOCCE ORALI SOLUZIONE [Concomitant]
     Active Substance: TRAZODONE HYDROCHLORIDE
     Indication: INSOMNIA
     Dosage: 20 GTT
     Route: 048
  7. ELIQUIS [Suspect]
     Active Substance: APIXABAN
     Indication: ATRIAL FIBRILLATION
     Dosage: 10 MILLIGRAM DAILY;
     Route: 048
     Dates: start: 20160404, end: 20160510
  8. PARIET - 20 MG CPR GASTRORESISTENTI [Concomitant]
     Indication: PROPHYLAXIS
     Dosage: 1 DF
     Route: 048
  9. FUROSEMIDE. [Concomitant]
     Active Substance: FUROSEMIDE
     Indication: PRODUCT USED FOR UNKNOWN INDICATION
     Dosage: 50 MG
     Route: 048

REACTIONS (1)
  - Iron deficiency anaemia [Fatal]

NARRATIVE: CASE EVENT DATE: 20160510
